FAERS Safety Report 9418912 (Version 1)
Quarter: 2013Q3

REPORT INFORMATION
  Report Type: Spontaneous
  Country: TR (occurrence: TR)
  Receive Date: 20130725
  Receipt Date: 20130725
  Transmission Date: 20140515
  Serious: Yes (Hospitalization)
  Sender: FDA-Public Use
  Company Number: TR-ROCHE-1253034

PATIENT
  Age: 68 Year
  Sex: Female
  Weight: 95.11 kg

DRUGS (4)
  1. LUCENTIS [Suspect]
     Indication: DIABETIC RETINAL OEDEMA
     Route: 050
     Dates: start: 20130614
  2. LANTUS [Concomitant]
  3. CHOLESTEROL [Concomitant]
  4. INSULIN [Concomitant]

REACTIONS (1)
  - VIIth nerve paralysis [Not Recovered/Not Resolved]
